FAERS Safety Report 16112622 (Version 2)
Quarter: 2019Q2

REPORT INFORMATION
  Report Type: Spontaneous
  Country: TW (occurrence: TW)
  Receive Date: 20190325
  Receipt Date: 20190415
  Transmission Date: 20190711
  Serious: Yes (Hospitalization)
  Sender: FDA-Public Use
  Company Number: TW-GILEAD-2019-0394019

PATIENT
  Age: 70 Year
  Sex: Male

DRUGS (4)
  1. TRAJENTA [Suspect]
     Active Substance: LINAGLIPTIN
     Indication: HYPOGLYCAEMIA
     Dosage: UNK
     Route: 065
     Dates: end: 20190306
  2. LODITON [Suspect]
     Active Substance: METFORMIN HYDROCHLORIDE
     Indication: HYPOGLYCAEMIA
     Dosage: UNK
     Route: 065
  3. AMARYL [Suspect]
     Active Substance: GLIMEPIRIDE
     Indication: HYPOGLYCAEMIA
     Dosage: UNK
     Route: 065
     Dates: start: 20190307
  4. HARVONI [Suspect]
     Active Substance: LEDIPASVIR\SOFOSBUVIR
     Indication: PRODUCT USED FOR UNKNOWN INDICATION
     Dosage: 1 DF, QD
     Route: 048
     Dates: start: 20190214

REACTIONS (6)
  - Hypoglycaemia [Recovering/Resolving]
  - Muscular weakness [Unknown]
  - Muscular weakness [Unknown]
  - Cold sweat [Unknown]
  - Drug interaction [Unknown]
  - Muscular weakness [Unknown]

NARRATIVE: CASE EVENT DATE: 20190220
